FAERS Safety Report 19040252 (Version 1)
Quarter: 2021Q1

REPORT INFORMATION
  Report Type: Spontaneous
  Country: US (occurrence: US)
  Receive Date: 20210322
  Receipt Date: 20210322
  Transmission Date: 20210420
  Serious: No
  Sender: FDA-Public Use
  Company Number: US-BIOHAVEN PHARMACEUTICALS-2021BHV00023

PATIENT
  Sex: Male

DRUGS (11)
  1. DEPAKOTE [Concomitant]
     Active Substance: DIVALPROEX SODIUM
     Dosage: IN THE EVENINGS
  2. MAGNESIUM [Concomitant]
     Active Substance: MAGNESIUM
     Dosage: 3 CONSECUTIVE DAYS, AS NEEDED
  3. NURTEC ODT [Suspect]
     Active Substance: RIMEGEPANT SULFATE
     Indication: CLUSTER HEADACHE
  4. EMGALITY [Concomitant]
     Active Substance: GALCANEZUMAB-GNLM
     Dosage: UNK, 1X/MONTH
  5. ROBAXIN [Concomitant]
     Active Substance: METHOCARBAMOL
     Dosage: 3 CONSECUTIVE DAYS,  AS NEEDED
  6. COMPAZINE [Concomitant]
     Active Substance: PROCHLORPERAZINE MALEATE
     Dosage: 3 CONSECUTIVE DAYS,  AS NEEDED
  7. NURTEC ODT [Suspect]
     Active Substance: RIMEGEPANT SULFATE
     Indication: HEADACHE
  8. BENADRYL [Concomitant]
     Active Substance: DIPHENHYDRAMINE HYDROCHLORIDE
     Dosage: 3 CONSECUTIVE DAYS, AS NEEDED
  9. OXYGEN. [Concomitant]
     Active Substance: OXYGEN
     Dosage: AS NEEDED
  10. NURTEC ODT [Suspect]
     Active Substance: RIMEGEPANT SULFATE
     Indication: MIGRAINE
     Dosage: 75 MG
     Route: 048
     Dates: start: 202012
  11. UNSPECIFIED BLOOD THINNER [Concomitant]
     Active Substance: UNSPECIFIED INGREDIENT

REACTIONS (3)
  - Therapeutic response shortened [Unknown]
  - Drug ineffective [Recovered/Resolved]
  - Therapeutic product effect incomplete [Unknown]
